FAERS Safety Report 12939981 (Version 2)
Quarter: 2017Q1

REPORT INFORMATION
  Report Type: Spontaneous
  Country: TR (occurrence: TR)
  Receive Date: 20161115
  Receipt Date: 20170118
  Transmission Date: 20170428
  Serious: Yes (Other)
  Sender: FDA-Public Use
  Company Number: TR-GLENMARK PHARMACEUTICALS INC, USA.-2016GMK024941

PATIENT
  Age: 63 Year
  Sex: Female

DRUGS (10)
  1. DEXAMETHASONE. [Concomitant]
     Active Substance: DEXAMETHASONE
     Indication: LISTERIOSIS
  2. LINEZOLID. [Suspect]
     Active Substance: LINEZOLID
     Indication: LISTERIA ENCEPHALITIS
  3. METHYLPREDNISOLONE. [Concomitant]
     Active Substance: METHYLPREDNISOLONE
     Indication: LISTERIOSIS
     Dosage: 8 MG, OD
  4. LINEZOLID. [Suspect]
     Active Substance: LINEZOLID
     Indication: LISTERIOSIS
     Dosage: 600 MG, BID
     Route: 042
  5. GENTAMICIN. [Concomitant]
     Active Substance: GENTAMICIN
     Indication: LISTERIA ENCEPHALITIS
     Dosage: 80 MG, (8 HOURS)
     Route: 042
  6. GENTAMICIN. [Concomitant]
     Active Substance: GENTAMICIN
     Indication: LISTERIOSIS
  7. DEXAMETHASONE. [Concomitant]
     Active Substance: DEXAMETHASONE
     Indication: LISTERIA ENCEPHALITIS
     Dosage: UNK
     Route: 042
  8. PENICILLIN G                       /00000901/ [Concomitant]
     Active Substance: PENICILLIN G
     Indication: LISTERIOSIS
  9. PENICILLIN G                       /00000901/ [Concomitant]
     Active Substance: PENICILLIN G
     Indication: LISTERIA ENCEPHALITIS
     Dosage: 4000000 IU, (4 HOURS)
     Route: 042
  10. METHYLPREDNISOLONE. [Concomitant]
     Active Substance: METHYLPREDNISOLONE
     Indication: LISTERIA ENCEPHALITIS
     Dosage: 20 MG, (48 HOURS)
     Route: 042

REACTIONS (2)
  - Thrombocytopenia [Unknown]
  - Haematuria [Unknown]
